FAERS Safety Report 8372500 (Version 2)
Quarter: 2013Q1

REPORT INFORMATION
  Report Type: Report from Study
  Country: US (occurrence: US)
  Receive Date: 20120129
  Receipt Date: 20130129
  Transmission Date: 20140127
  Serious: No
  Sender: FDA-Public Use
  Company Number: US-ABBOTT-11P-163-0869514-00

PATIENT
  Age: 62 Year
  Sex: Female

DRUGS (13)
  1. HUMIRA 40 MG/0.8 ML PEN [Suspect]
     Indication: RHEUMATOID ARTHRITIS
     Dates: start: 20110928, end: 20111026
  2. COZAAR [Concomitant]
     Indication: HYPERTENSION
     Dosage: DAILY
  3. HCTZ [Concomitant]
     Indication: HYPERTENSION
     Dosage: 1/2 PILL DAILY
  4. HCTZ [Concomitant]
     Dosage: DAILY
  5. TOPROL XL [Concomitant]
     Indication: TACHYCARDIA
     Dosage: DAILY
  6. NORVASC [Concomitant]
     Indication: HYPERTENSION
     Dosage: DAILY
  7. CALCIUM [Concomitant]
     Indication: PRODUCT USED FOR UNKNOWN INDICATION
     Dosage: DAILY
  8. SPIRIVA [Concomitant]
     Indication: CHRONIC OBSTRUCTIVE PULMONARY DISEASE
     Dosage: DAILY
  9. SYMBICORT [Concomitant]
     Indication: CHRONIC OBSTRUCTIVE PULMONARY DISEASE
     Dosage: DAILY
  10. ASA [Concomitant]
     Indication: PROPHYLAXIS
     Dosage: DAILY
  11. ALBUTEROL [Concomitant]
     Indication: DYSPNOEA
  12. TRAMADOL [Concomitant]
     Indication: PAIN
  13. ZOCOR [Concomitant]
     Indication: BLOOD CHOLESTEROL INCREASED
     Dosage: DAILY

REACTIONS (7)
  - Psoriasis [Recovering/Resolving]
  - Local swelling [Recovering/Resolving]
  - Weight increased [Not Recovered/Not Resolved]
  - Cough [Not Recovered/Not Resolved]
  - Sputum purulent [Not Recovered/Not Resolved]
  - Cardiac disorder [Not Recovered/Not Resolved]
  - Cardiac disorder [Not Recovered/Not Resolved]
